FAERS Safety Report 11012996 (Version 2)
Quarter: 2015Q2

REPORT INFORMATION
  Report Type: Spontaneous
  Country: US (occurrence: US)
  Receive Date: 20150411
  Receipt Date: 20150525
  Transmission Date: 20150821
  Serious: Yes (Hospitalization)
  Sender: FDA-Public Use
  Company Number: US-JNJFOC-20131014834

PATIENT
  Sex: Male

DRUGS (1)
  1. REMICADE [Suspect]
     Active Substance: INFLIXIMAB
     Indication: INTESTINAL HAEMORRHAGE
     Dosage: 3 YEARS AGO
     Route: 042
     Dates: start: 2010

REACTIONS (3)
  - Pleurisy [Unknown]
  - Pleural adhesion [Unknown]
  - Lower respiratory tract infection bacterial [Not Recovered/Not Resolved]

NARRATIVE: CASE EVENT DATE: 201310
